FAERS Safety Report 18551378 (Version 1)
Quarter: 2020Q4

REPORT INFORMATION
  Report Type: Spontaneous
  Country: US (occurrence: US)
  Receive Date: 20201126
  Receipt Date: 20201126
  Transmission Date: 20210114
  Serious: Yes (Other)
  Sender: FDA-Public Use
  Company Number: US-TRIS PHARMA, INC.-20US009167

PATIENT

DRUGS (2)
  1. DYANAVEL XR [Suspect]
     Active Substance: AMPHETAMINE
     Indication: PRODUCT USED FOR UNKNOWN INDICATION
     Dosage: UNK (POSSIBLE OVERDOSE)
     Route: 065
     Dates: start: 2020
  2. DYANAVEL XR [Suspect]
     Active Substance: AMPHETAMINE
     Dosage: UNK
     Route: 065
     Dates: end: 2020

REACTIONS (2)
  - Seizure [Recovered/Resolved]
  - Overdose [Unknown]

NARRATIVE: CASE EVENT DATE: 2020
